FAERS Safety Report 5019855-5 (Version None)
Quarter: 2006Q2

REPORT INFORMATION
  Report Type: 
  Country: None (occurrence: None)
  Receive Date: 20060607
  Receipt Date: 20060529
  Transmission Date: 20061013
  Serious: Yes (Disabling)
  Sender: FDA-Public Use
  Company Number: DK-BOEHRINGER INGELHEIM PHARMACEUTICALS, INC.-2006-SW-00239DB

PATIENT
  Sex: Female
  Weight: 84 kg

DRUGS (1)
  1. CATAPRESAN 25 MCG [Suspect]
     Indication: HOT FLUSH
     Dates: start: 20050501, end: 20060311

REACTIONS (5)
  - FEELING ABNORMAL [None]
  - MENTAL DISORDER [None]
  - MUSCULAR WEAKNESS [None]
  - PAIN [None]
  - PAIN IN EXTREMITY [None]
